FAERS Safety Report 17733781 (Version 1)
Quarter: 2020Q2

REPORT INFORMATION
  Report Type: Report from Study
  Country: IT (occurrence: IT)
  Receive Date: 20200501
  Receipt Date: 20200501
  Transmission Date: 20200714
  Serious: Yes (Hospitalization)
  Sender: FDA-Public Use
  Company Number: IT-ACCORD-180155

PATIENT
  Age: 66 Year
  Sex: Male
  Weight: 120 kg

DRUGS (7)
  1. ESOMEPRAZOLE/ESOMEPRAZOLE MAGNESIUM/ESOMEPRAZOLE SODIUM [Suspect]
     Active Substance: ESOMEPRAZOLE
     Route: 048
     Dates: start: 20200101, end: 20200101
  2. FUROSEMIDE. [Suspect]
     Active Substance: FUROSEMIDE
     Route: 048
     Dates: start: 20200101, end: 20200101
  3. ROSUVASTATIN. [Suspect]
     Active Substance: ROSUVASTATIN
     Route: 048
     Dates: start: 20200101, end: 20200101
  4. CARDIOASPIRIN [Concomitant]
     Active Substance: ASPIRIN
     Dosage: STRENGTH: 100 MG
  5. AMLODIPINE [Suspect]
     Active Substance: AMLODIPINE BESYLATE
     Route: 048
     Dates: start: 20200101, end: 20200101
  6. HUMALOG [Suspect]
     Active Substance: INSULIN LISPRO
     Route: 058
     Dates: start: 20200101, end: 20200101
  7. JARDIANCE [Suspect]
     Active Substance: EMPAGLIFLOZIN
     Dosage: STRENGTH: 10 MG
     Route: 048
     Dates: start: 20200101, end: 20200101

REACTIONS (3)
  - Intentional self-injury [Unknown]
  - Bradyphrenia [Unknown]
  - Drug abuse [Unknown]

NARRATIVE: CASE EVENT DATE: 20200101
